FAERS Safety Report 16247945 (Version 2)
Quarter: 2020Q1

REPORT INFORMATION
  Report Type: Spontaneous
  Country: US (occurrence: US)
  Receive Date: 20190428
  Receipt Date: 20200211
  Transmission Date: 20200409
  Serious: Yes (Hospitalization, Other)
  Sender: FDA-Public Use
  Company Number: US-JNJFOC-20190423055

PATIENT
  Age: 75 Year
  Sex: Male

DRUGS (2)
  1. XARELTO [Suspect]
     Active Substance: RIVAROXABAN
     Route: 048
     Dates: start: 201608, end: 20170929
  2. XARELTO [Suspect]
     Active Substance: RIVAROXABAN
     Indication: PULMONARY EMBOLISM
     Route: 048
     Dates: start: 20160819, end: 201708

REACTIONS (2)
  - Gastrointestinal haemorrhage [Recovering/Resolving]
  - Blood loss anaemia [Recovering/Resolving]

NARRATIVE: CASE EVENT DATE: 20170809
